FAERS Safety Report 18799696 (Version 1)
Quarter: 2021Q1

REPORT INFORMATION
  Report Type: Spontaneous
  Country: ZA (occurrence: ZA)
  Receive Date: 20210128
  Receipt Date: 20210128
  Transmission Date: 20210419
  Serious: Yes (Other)
  Sender: FDA-Public Use
  Company Number: ZA-MYLANLABS-2021M1002874

PATIENT
  Sex: Male

DRUGS (1)
  1. EFLATEN [Suspect]
     Active Substance: EFAVIRENZ\LAMIVUDINE\TENOFOVIR DISOPROXIL FUMARATE
     Indication: HIV INFECTION
     Dosage: 1 DOSAGE FORM, QD, FOR YEARS NOW
     Route: 048
     Dates: start: 2014, end: 202012

REACTIONS (5)
  - Liver function test abnormal [Unknown]
  - Blood cholesterol increased [Unknown]
  - Hepatotoxicity [Unknown]
  - Hepatic steatosis [Recovered/Resolved]
  - Prostatomegaly [Unknown]
